FAERS Safety Report 25236023 (Version 8)
Quarter: 2025Q4

REPORT INFORMATION
  Report Type: Report from Study
  Country: US (occurrence: US)
  Receive Date: 20250424
  Receipt Date: 20251218
  Transmission Date: 20260118
  Serious: No
  Sender: PFIZER
  Company Number: US-PFIZER INC-202500085392

PATIENT
  Age: 15 Year
  Sex: Male

DRUGS (2)
  1. NGENLA [Suspect]
     Active Substance: SOMATROGON-GHLA
     Dosage: 40 MG, WEEKLY (ADMINISTERS 20 MG IN EACH ARM)
  2. NGENLA [Suspect]
     Active Substance: SOMATROGON-GHLA
     Dosage: GAVE 26 MG INSTEAD OF INTENDED 20 MG THAT WAS SUPPOSED TO BE REMAINING IN PEN

REACTIONS (5)
  - Mood altered [Unknown]
  - Abnormal behaviour [Unknown]
  - Incorrect dose administered by device [Unknown]
  - Liquid product physical issue [Unknown]
  - Device delivery system issue [Unknown]
